FAERS Safety Report 8523176-3 (Version None)
Quarter: 2012Q3

REPORT INFORMATION
  Report Type: 
  Country: None (occurrence: None)
  Receive Date: 20120713
  Receipt Date: 20120713
  Transmission Date: 20120928
  Serious: No
  Sender: FDA-Public Use
  Company Number: None

PATIENT
  Age: 6 Year
  Sex: Female
  Weight: 21.3191 kg

DRUGS (1)
  1. AVEENO CONTINUOUS SUNBLOCK PROTECTION SPF 55 WATERPROOF JOHNSON + JOHN [Suspect]
     Indication: PROPHYLAXIS AGAINST SOLAR RADIATION
     Dosage: APPLIED EXPOSED SKIN LIBERALLY TOP
     Route: 061
     Dates: start: 20120709, end: 20120709

REACTIONS (2)
  - PRODUCT QUALITY ISSUE [None]
  - SUNBURN [None]
